FAERS Safety Report 6374171-4 (Version None)
Quarter: 2009Q3

REPORT INFORMATION
  Report Type: 
  Country: None (occurrence: None)
  Receive Date: 20090924
  Receipt Date: 20090623
  Transmission Date: 20100115
  Serious: No
  Sender: FDA-Public Use
  Company Number: US-ASTRAZENECA-2009UW16851

PATIENT
  Age: 87 Year
  Sex: Female
  Weight: 57.2 kg

DRUGS (12)
  1. SEROQUEL [Suspect]
     Route: 048
  2. OMEPRAZOLE [Concomitant]
  3. LORAZEPAM [Concomitant]
  4. VICODIN [Concomitant]
  5. TRICOCOSEMINE [Concomitant]
  6. XELON PATCH [Concomitant]
  7. CELEBREX [Concomitant]
  8. MLODEPINE VASCULATE [Concomitant]
  9. LISINOPRIL [Concomitant]
  10. ZOFRAN [Concomitant]
  11. REPINERAL [Concomitant]
  12. MIRTAZAPINE [Concomitant]

REACTIONS (3)
  - DRY EYE [None]
  - DRY MOUTH [None]
  - MUSCLE TWITCHING [None]
